FAERS Safety Report 8606825 (Version 3)
Quarter: 2013Q4

REPORT INFORMATION
  Report Type: Spontaneous
  Country: US (occurrence: US)
  Receive Date: 20120611
  Receipt Date: 20131128
  Transmission Date: 20140711
  Serious: Yes (Hospitalization)
  Sender: FDA-Public Use
  Company Number: US-ASTRAZENECA-2012SE35208

PATIENT
  Age: 69 Year
  Sex: Female

DRUGS (14)
  1. NEXIUM [Suspect]
     Indication: GASTROOESOPHAGEAL REFLUX DISEASE
     Route: 048
     Dates: start: 2007, end: 2010
  2. OMEPRAZOLE [Suspect]
     Indication: GASTROOESOPHAGEAL REFLUX DISEASE
     Route: 048
     Dates: start: 2010
  3. ROLAIDS [Concomitant]
  4. CALCIUM FIELDS [Concomitant]
     Indication: CALCIUM DEFICIENCY
  5. METOCLOPRAMIDE [Concomitant]
     Indication: GASTROINTESTINAL DISORDER
  6. CARVEDILOL [Concomitant]
     Indication: BLOOD PRESSURE ABNORMAL
  7. EFFIENT [Concomitant]
     Indication: ANTICOAGULANT THERAPY
  8. NEPHATAPINE [Concomitant]
     Indication: BLOOD PRESSURE ABNORMAL
  9. CLONIDINE [Concomitant]
     Indication: BLOOD PRESSURE ABNORMAL
  10. ZOCOR [Concomitant]
     Indication: BLOOD CHOLESTEROL
  11. MYCHARTIS [Concomitant]
     Indication: BLOOD PRESSURE ABNORMAL
  12. CLONORCHIS [Concomitant]
     Indication: GASTROINTESTINAL DISORDER
  13. INSULIN [Concomitant]
     Indication: DIABETES MELLITUS
  14. BABY ASPIRIN [Concomitant]

REACTIONS (5)
  - Cardiac disorder [Unknown]
  - Osteoporosis [Unknown]
  - Multiple fractures [Unknown]
  - Calcium deficiency [Unknown]
  - Osteopenia [Unknown]
